FAERS Safety Report 8902637 (Version 2)
Quarter: 2013Q1

REPORT INFORMATION
  Report Type: Spontaneous
  Country: FR (occurrence: FR)
  Receive Date: 20121112
  Receipt Date: 20130109
  Transmission Date: 20140127
  Serious: No
  Sender: FDA-Public Use
  Company Number: FR-JNJFOC-20121101732

PATIENT
  Age: 43 Year
  Sex: Female
  Weight: 72 kg

DRUGS (4)
  1. DUROGESIC [Suspect]
     Indication: ABDOMINAL PAIN
     Route: 062
  2. DUROGESIC [Suspect]
     Indication: ABDOMINAL PAIN
     Route: 062
  3. DUROGESIC [Suspect]
     Indication: ABDOMINAL PAIN
     Route: 062
  4. DUROGESIC [Suspect]
     Indication: ABDOMINAL PAIN
     Dosage: HALF A 25UG/HR PATCH
     Route: 062
     Dates: start: 20120830, end: 20121002

REACTIONS (2)
  - Drug prescribing error [Unknown]
  - Off label use [Unknown]
